FAERS Safety Report 4277502-4 (Version None)
Quarter: 2004Q1

REPORT INFORMATION
  Report Type: 
  Country: None (occurrence: None)
  Receive Date: 20040122
  Receipt Date: 19881207
  Transmission Date: 20041129
  Serious: Yes (Death)
  Sender: FDA-Public Use
  Company Number: 882665F001

PATIENT
  Age: 52 Year
  Sex: Female

DRUGS (1)
  1. TEGRETOL [Suspect]
     Indication: CONVULSION
     Dosage: 600 MG/DAY
     Route: 048
     Dates: start: 19850801, end: 19860501

REACTIONS (12)
  - APLASTIC ANAEMIA [None]
  - BONE MARROW DEPRESSION [None]
  - DEATH [None]
  - FATIGUE [None]
  - HAEMATOMA [None]
  - HEADACHE [None]
  - PALLOR [None]
  - PETECHIAE [None]
  - PNEUMONITIS [None]
  - PRURITUS [None]
  - RASH [None]
  - SYNCOPE [None]
